FAERS Safety Report 7478021-4 (Version None)
Quarter: 2011Q2

REPORT INFORMATION
  Report Type: 
  Country: None (occurrence: None)
  Receive Date: 20110513
  Receipt Date: 20110502
  Transmission Date: 20111010
  Serious: Yes (Hospitalization)
  Sender: FDA-Public Use
  Company Number: US-EISAI INC-E3810-04583-SPO-US

PATIENT
  Sex: Female
  Weight: 97 kg

DRUGS (2)
  1. ACIPHEX [Suspect]
  2. ACIPHEX [Suspect]
     Route: 048
     Dates: start: 20010101

REACTIONS (5)
  - PATELLA FRACTURE [None]
  - DRUG INEFFECTIVE [None]
  - THROAT TIGHTNESS [None]
  - PAINFUL RESPIRATION [None]
  - H1N1 INFLUENZA [None]
